FAERS Safety Report 23032968 (Version 1)
Quarter: 2023Q4

REPORT INFORMATION
  Report Type: Spontaneous
  Country: US (occurrence: US)
  Receive Date: 20231005
  Receipt Date: 20231005
  Transmission Date: 20240110
  Serious: Yes (Other)
  Sender: FDA-Public Use
  Company Number: US-MYLANLABS-2023M1105210

PATIENT
  Sex: Female

DRUGS (2)
  1. FENTANYL [Suspect]
     Active Substance: FENTANYL
     Indication: Product used for unknown indication
     Dosage: UNK, INTRAVENOUS (NOT SPECIFIED)
     Route: 042
  2. BUPRENORPHINE [Suspect]
     Active Substance: BUPRENORPHINE
     Indication: Drug therapy
     Dosage: 24 MILLIGRAM, QD, ROUTE: VAGINAL EXPOSURE VIA PARTNER^S SEMEN (OTHER)
     Route: 065

REACTIONS (3)
  - Drug withdrawal syndrome [Recovered/Resolved]
  - Drug abuse [Unknown]
  - Exposure via body fluid [Recovered/Resolved]
